FAERS Safety Report 11588607 (Version 4)
Quarter: 2015Q4

REPORT INFORMATION
  Report Type: Spontaneous
  Country: GB (occurrence: GB)
  Receive Date: 20151002
  Receipt Date: 20151028
  Transmission Date: 20160304
  Serious: Yes (Hospitalization, Other)
  Sender: FDA-Public Use
  Company Number: GB-AMGEN-GBRSP2015093951

PATIENT
  Age: 56 Year
  Sex: Female

DRUGS (2)
  1. FEXOFENADINE [Concomitant]
     Active Substance: FEXOFENADINE\FEXOFENADINE HYDROCHLORIDE
     Dosage: UNK
  2. ENBREL [Suspect]
     Active Substance: ETANERCEPT
     Indication: ANKYLOSING SPONDYLITIS
     Dosage: 50 MG, WEEKLY
     Route: 065
     Dates: start: 20150810, end: 201509

REACTIONS (9)
  - Ankylosing spondylitis [Unknown]
  - Dysgraphia [Unknown]
  - Oropharyngeal pain [Unknown]
  - Injection site reaction [Unknown]
  - Uveitis [Recovering/Resolving]
  - Condition aggravated [Unknown]
  - Dyspnoea [Unknown]
  - Injection site pruritus [Unknown]
  - Injection site erythema [Unknown]

NARRATIVE: CASE EVENT DATE: 2015
